FAERS Safety Report 5408008-4 (Version None)
Quarter: 2007Q3

REPORT INFORMATION
  Report Type: 
  Country: None (occurrence: None)
  Receive Date: 20070727
  Receipt Date: 20070718
  Transmission Date: 20080115
  Serious: Yes (Hospitalization)
  Sender: FDA-Public Use
  Company Number: 200710763BVD

PATIENT
  Age: 7 Year
  Sex: Male

DRUGS (11)
  1. KOGENATE SF (FACTOR VIII (ANTIHAEMOPHILIC FACTOR)) [Suspect]
     Indication: FACTOR VIII DEFICIENCY
     Dosage: SEE IMAGE
     Route: 042
     Dates: start: 20010101, end: 20030101
  2. KOGENATE SF (FACTOR VIII (ANTIHAEMOPHILIC FACTOR)) [Suspect]
     Indication: FACTOR VIII DEFICIENCY
     Dosage: SEE IMAGE
     Route: 042
     Dates: start: 20000515
  3. KOGENATE SF (FACTOR VIII (ANTIHAEMOPHILIC FACTOR)) [Suspect]
     Indication: FACTOR VIII DEFICIENCY
     Dosage: SEE IMAGE
     Route: 042
     Dates: start: 20000801
  4. KOGENATE SF (FACTOR VIII (ANTIHAEMOPHILIC FACTOR)) [Suspect]
     Indication: FACTOR VIII DEFICIENCY
     Dosage: SEE IMAGE
     Route: 042
     Dates: start: 20000913
  5. KOGENATE SF (FACTOR VIII (ANTIHAEMOPHILIC FACTOR)) [Suspect]
     Indication: FACTOR VIII DEFICIENCY
     Dosage: SEE IMAGE
     Route: 042
     Dates: start: 20010608
  6. KOGENATE SF (FACTOR VIII (ANTIHAEMOPHILIC FACTOR)) [Suspect]
     Indication: FACTOR VIII DEFICIENCY
     Dosage: SEE IMAGE
     Route: 042
     Dates: start: 20010622
  7. KOGENATE SF (FACTOR VIII (ANTIHAEMOPHILIC FACTOR)) [Suspect]
  8. KOGENATE SF (FACTOR VIII (ANTIHAEMOPHILIC FACTOR)) [Suspect]
  9. KOGENATE SF (FACTOR VIII (ANTIHAEMOPHILIC FACTOR)) [Suspect]
  10. KOGENATE SF (FACTOR VIII (ANTIHAEMOPHILIC FACTOR)) [Suspect]
  11. HAEMATE FACTOR (FACTOR VIII (ANTIHAEMOPHILIC FACTOR)) [Suspect]
     Indication: FACTOR VIII DEFICIENCY
     Dates: start: 20030101

REACTIONS (3)
  - ALANINE AMINOTRANSFERASE INCREASED [None]
  - ASPARTATE AMINOTRANSFERASE INCREASED [None]
  - HEPATITIS C ANTIBODY POSITIVE [None]
